FAERS Safety Report 11224671 (Version 3)
Quarter: 2015Q3

REPORT INFORMATION
  Report Type: Spontaneous
  Country: CA (occurrence: CA)
  Receive Date: 20150629
  Receipt Date: 20150727
  Transmission Date: 20151125
  Serious: Yes (Other)
  Sender: FDA-Public Use
  Company Number: CA-PFIZER INC-2015212917

PATIENT
  Age: 69 Year
  Sex: Male

DRUGS (7)
  1. ACTEMRA [Suspect]
     Active Substance: TOCILIZUMAB
     Indication: RHEUMATOID ARTHRITIS
     Dosage: UNK
  2. ORENCIA [Suspect]
     Active Substance: ABATACEPT
     Indication: RHEUMATOID ARTHRITIS
     Dosage: UNK
     Dates: end: 20150616
  3. ARAVA [Suspect]
     Active Substance: LEFLUNOMIDE
     Indication: RHEUMATOID ARTHRITIS
     Dosage: UNK
  4. SULFASALAZINE. [Suspect]
     Active Substance: SULFASALAZINE
     Indication: RHEUMATOID ARTHRITIS
     Dosage: UNK
  5. METHOTREXATE SODIUM. [Suspect]
     Active Substance: METHOTREXATE SODIUM
     Dosage: INJECTIONS
     Dates: start: 2007
  6. METHOTREXATE SODIUM. [Suspect]
     Active Substance: METHOTREXATE SODIUM
     Indication: RHEUMATOID ARTHRITIS
     Dosage: UNK
     Route: 048
     Dates: start: 2005, end: 2007
  7. PLAQUENIL [Suspect]
     Active Substance: HYDROXYCHLOROQUINE SULFATE
     Indication: RHEUMATOID ARTHRITIS
     Dosage: UNK

REACTIONS (14)
  - Malaise [Unknown]
  - Joint swelling [Not Recovered/Not Resolved]
  - Abdominal discomfort [Unknown]
  - Eye disorder [Unknown]
  - Thyroid cancer [Unknown]
  - Rectal haemorrhage [Unknown]
  - Osteoarthritis [Not Recovered/Not Resolved]
  - Drug intolerance [Unknown]
  - Limb discomfort [Not Recovered/Not Resolved]
  - Nodule [Unknown]
  - Drug ineffective [Unknown]
  - Nausea [Unknown]
  - Herpes zoster [Unknown]
  - Condition aggravated [Not Recovered/Not Resolved]
